FAERS Safety Report 25364049 (Version 1)
Quarter: 2025Q2

REPORT INFORMATION
  Report Type: Spontaneous
  Country: PL (occurrence: PL)
  Receive Date: 20250527
  Receipt Date: 20250527
  Transmission Date: 20250717
  Serious: Yes (Hospitalization, Other)
  Sender: AMGEN
  Company Number: PL-AMGEN-POLSP2025100155

PATIENT
  Age: 55 Year
  Sex: Female

DRUGS (6)
  1. VECTIBIX [Suspect]
     Active Substance: PANITUMUMAB
     Indication: Colorectal cancer metastatic
     Dosage: 6 MILLIGRAM/KILOGRAM, Q2WK ( 1 DAY)
     Route: 065
     Dates: start: 20241108
  2. IRINOTECAN [Suspect]
     Active Substance: IRINOTECAN
     Indication: Colorectal cancer metastatic
     Dosage: 180 MILLIGRAM/SQ. METER, Q2WK
     Route: 040
     Dates: start: 20241108
  3. LEVOLEUCOVORIN DISODIUM [Suspect]
     Active Substance: LEVOLEUCOVORIN DISODIUM
     Indication: Colorectal cancer metastatic
     Dosage: 100 MILLIGRAM/SQ. METER, Q2WK((2 HOUR INFUSION DAY 1-2)
     Route: 040
     Dates: start: 20241108
  4. FLUOROURACIL [Suspect]
     Active Substance: FLUOROURACIL
     Indication: Colorectal cancer metastatic
     Dosage: 400 MILLIGRAM/SQ. METER, Q2WK (DAY 1 - 2) IV BOLUS
     Route: 040
     Dates: start: 20241108
  5. FLUOROURACIL [Suspect]
     Active Substance: FLUOROURACIL
     Dosage: 600 MILLIGRAM/SQ. METER, Q2WK (22 HOUR INFUSION DAY 1 - 2)
     Route: 040
  6. AMLODIPINE BESYLATE [Concomitant]
     Active Substance: AMLODIPINE BESYLATE
     Indication: Hypertension

REACTIONS (7)
  - Hepatic failure [Unknown]
  - Asthenia [Unknown]
  - Hypokalaemia [Unknown]
  - Hepatomegaly [Unknown]
  - Rash maculo-papular [Recovering/Resolving]
  - Diarrhoea [Unknown]
  - General physical health deterioration [Unknown]

NARRATIVE: CASE EVENT DATE: 20241101
